FAERS Safety Report 12095482 (Version 3)
Quarter: 2016Q1

REPORT INFORMATION
  Report Type: Spontaneous
  Country: AT (occurrence: AT)
  Receive Date: 20160219
  Receipt Date: 20160324
  Transmission Date: 20160526
  Serious: Yes (Death, Hospitalization)
  Sender: FDA-Public Use
  Company Number: PHHY2016AT018464

PATIENT
  Age: 26 Year
  Sex: Male
  Weight: 79 kg

DRUGS (3)
  1. NAVELBINE [Concomitant]
     Active Substance: VINORELBINE TARTRATE
     Indication: PRODUCT USED FOR UNKNOWN INDICATION
     Dosage: UNK
     Route: 065
     Dates: start: 20150821
  2. MEKINIST [Suspect]
     Active Substance: TRAMETINIB DIMETHYL SULFOXIDE
     Indication: LUNG ADENOCARCINOMA METASTATIC
     Dosage: 2 MG, QD
     Route: 048
     Dates: start: 20160118, end: 20160203
  3. GEMCITABINE [Concomitant]
     Active Substance: GEMCITABINE\GEMCITABINE HYDROCHLORIDE
     Indication: PRODUCT USED FOR UNKNOWN INDICATION
     Dosage: UNK
     Route: 065
     Dates: start: 20150821

REACTIONS (8)
  - Malignant neoplasm progression [Fatal]
  - Rash [Recovering/Resolving]
  - Lung infiltration [Recovering/Resolving]
  - Off label use [Unknown]
  - Dyspnoea [Not Recovered/Not Resolved]
  - Pulmonary artery thrombosis [Unknown]
  - Pneumonitis [Not Recovered/Not Resolved]
  - General physical health deterioration [Not Recovered/Not Resolved]

NARRATIVE: CASE EVENT DATE: 20160203
